FAERS Safety Report 8920075 (Version 2)
Quarter: 2013Q1

REPORT INFORMATION
  Report Type: Spontaneous
  Country: US (occurrence: US)
  Receive Date: 20121121
  Receipt Date: 20130111
  Transmission Date: 20140127
  Serious: Yes (Other)
  Sender: FDA-Public Use
  Company Number: US-BRISTOL-MYERS SQUIBB COMPANY-17126152

PATIENT
  Age: 78 Year
  Sex: Female

DRUGS (4)
  1. ABATACEPT SUBQ INJECTION 125MG/ML [Suspect]
     Dosage: 125MG/1 ML
     Route: 058
  2. HYDREA CAPS 500 MG [Concomitant]
  3. CALCIUM [Concomitant]
  4. MULTIVITAMIN [Concomitant]

REACTIONS (5)
  - Arthropathy [Unknown]
  - Abscess limb [Unknown]
  - Upper limb fracture [Unknown]
  - Amnesia [Unknown]
  - Confusional state [Unknown]
